FAERS Safety Report 5028423-0 (Version None)
Quarter: 2006Q2

REPORT INFORMATION
  Report Type: 
  Country: None (occurrence: None)
  Receive Date: 20060617
  Receipt Date: 20060613
  Transmission Date: 20061013
  Serious: Yes (Other)
  Sender: FDA-Public Use
  Company Number: NL-MERCK-0606NLD00008

PATIENT
  Age: 69 Year
  Sex: Female

DRUGS (6)
  1. FOSAMAX [Suspect]
     Indication: OSTEOPOROSIS
     Route: 048
     Dates: start: 20050507, end: 20060521
  2. LEVOTHYROXINE SODIUM [Concomitant]
     Route: 048
     Dates: start: 20010123
  3. CITALOPRAM HYDROBROMIDE [Concomitant]
     Route: 048
     Dates: start: 20040601
  4. OXAZEPAM [Concomitant]
     Route: 048
     Dates: start: 20060202
  5. FLUTICASONE PROPIONATE [Concomitant]
     Route: 055
     Dates: start: 20060201
  6. MELATONIN [Concomitant]
     Route: 048

REACTIONS (2)
  - COLITIS [None]
  - GASTRITIS [None]
